FAERS Safety Report 7176654-6 (Version None)
Quarter: 2010Q4

REPORT INFORMATION
  Report Type: 
  Country: None (occurrence: None)
  Receive Date: 20101220
  Receipt Date: 20101209
  Transmission Date: 20110411
  Serious: Yes (Other)
  Sender: FDA-Public Use
  Company Number: JP-PFIZER INC-2010140399

PATIENT
  Age: 25 Year
  Sex: Male

DRUGS (6)
  1. MEDROL [Suspect]
     Indication: PAIN IN EXTREMITY
     Dosage: DAILY
     Route: 048
  2. TEGRETOL [Concomitant]
     Dosage: 200 MG, UNK
     Route: 048
  3. LOXONIN [Concomitant]
     Dosage: 120 MG, UNK
     Route: 048
  4. VOLTAREN [Concomitant]
     Dosage: 50 MG, UNK
     Route: 054
  5. AGALSIDASE BETA [Concomitant]
     Dosage: 75 MG/DAY
     Route: 042
  6. ASPIRIN [Concomitant]
     Dosage: 100 MG, UNK
     Route: 048

REACTIONS (1)
  - CENTRAL OBESITY [None]
